FAERS Safety Report 16023284 (Version 1)
Quarter: 2019Q1

REPORT INFORMATION
  Report Type: Spontaneous
  Country: US (occurrence: US)
  Receive Date: 20190301
  Receipt Date: 20190301
  Transmission Date: 20190418
  Serious: No
  Sender: FDA-Public Use
  Company Number: US-ASTRAZENECA-2019SE33201

PATIENT
  Age: 58 Year
  Sex: Female

DRUGS (1)
  1. PRILOSEC OTC [Suspect]
     Active Substance: OMEPRAZOLE MAGNESIUM
     Dosage: 1 TABLET USED ONLY ONCE TODAY
     Route: 048
     Dates: start: 20190211, end: 20190211

REACTIONS (4)
  - Administration site coldness [Recovered/Resolved]
  - Feeling cold [Recovered/Resolved]
  - Administration site pain [Recovered/Resolved]
  - Tongue discomfort [Recovered/Resolved]

NARRATIVE: CASE EVENT DATE: 20190211
